FAERS Safety Report 4475903-2 (Version None)
Quarter: 2004Q4

REPORT INFORMATION
  Report Type: 
  Country: None (occurrence: None)
  Receive Date: 20041015
  Receipt Date: 20041005
  Transmission Date: 20050328
  Serious: Yes (Hospitalization)
  Sender: FDA-Public Use
  Company Number: DEWYE108928APR03

PATIENT
  Sex: Female

DRUGS (11)
  1. ENBREL [Suspect]
     Indication: RHEUMATOID ARTHRITIS
     Route: 058
     Dates: start: 20010901
  2. ENBREL [Suspect]
     Route: 058
     Dates: start: 20021201
  3. PREDNISOLONE [Concomitant]
  4. PREDNISOLONE [Concomitant]
  5. VOLTAREN [Concomitant]
     Dosage: ONE PER DAY
  6. COLECALCIFEROL [Concomitant]
     Dosage: TWO PER DAY
  7. CALCIUM [Concomitant]
  8. NORVASC [Concomitant]
  9. TIMOLOL MALEATE [Concomitant]
     Dosage: UNKNOWN
  10. FERROUS SULFATE TAB [Concomitant]
     Dosage: ONE PER DAY
  11. METHOXSALEN [Concomitant]

REACTIONS (3)
  - GLYCOSYLATED HAEMOGLOBIN INCREASED [None]
  - MYCOSIS FUNGOIDES [None]
  - PARAPSORIASIS [None]
